FAERS Safety Report 9089059 (Version 1)
Quarter: 2013Q1

REPORT INFORMATION
  Report Type: Spontaneous
  Country: ES (occurrence: ES)
  Receive Date: 20130201
  Receipt Date: 20130201
  Transmission Date: 20140127
  Serious: Yes (Other)
  Sender: FDA-Public Use
  Company Number: PHHY2013ES007847

PATIENT
  Age: 63 Year
  Sex: Male

DRUGS (3)
  1. ZOMETA [Suspect]
     Indication: PROSTATE CANCER
     Dosage: 4 MG, UNK
     Route: 042
     Dates: start: 20121102
  2. ZOMETA [Suspect]
     Dosage: UNK UKN, UNK
  3. ANTI-INTEGRIN [Concomitant]
     Dosage: UNK UKN, UNK
     Dates: start: 20121102

REACTIONS (2)
  - IVth nerve paralysis [Recovering/Resolving]
  - Orbital oedema [Recovering/Resolving]
